FAERS Safety Report 22592466 (Version 2)
Quarter: 2023Q2

REPORT INFORMATION
  Report Type: Spontaneous
  Country: US (occurrence: US)
  Receive Date: 20230613
  Receipt Date: 20230621
  Transmission Date: 20230722
  Serious: No
  Sender: FDA-Public Use
  Company Number: US-UNITED THERAPEUTICS-UNT-2023-016500

PATIENT
  Sex: Female
  Weight: 72.562 kg

DRUGS (5)
  1. REMODULIN [Suspect]
     Active Substance: TREPROSTINIL
     Indication: Pulmonary arterial hypertension
     Dosage: 0.025 ?G/KG, CONTINUING
     Route: 041
     Dates: end: 20230605
  2. REMODULIN [Suspect]
     Active Substance: TREPROSTINIL
     Dosage: 0.026 ?G/KG, CONTINUING
     Route: 041
     Dates: start: 20230605
  3. REMODULIN [Suspect]
     Active Substance: TREPROSTINIL
     Dosage: 0.021 ?G/KG, CONTINUING
     Route: 041
  4. REMODULIN [Suspect]
     Active Substance: TREPROSTINIL
     Dosage: UNK, CONTINUING
     Route: 041
     Dates: start: 20221117
  5. OPSUMIT [Concomitant]
     Active Substance: MACITENTAN
     Indication: Product used for unknown indication
     Dosage: UNK
     Route: 065

REACTIONS (13)
  - Paraesthesia [Unknown]
  - Hypoaesthesia [Unknown]
  - Tremor [Unknown]
  - Motor dysfunction [Unknown]
  - Photopsia [Unknown]
  - Dizziness [Unknown]
  - Pallor [Unknown]
  - Fatigue [Unknown]
  - Peripheral swelling [Unknown]
  - Hypoacusis [Unknown]
  - Palpitations [Unknown]
  - Headache [Not Recovered/Not Resolved]
  - Fluid retention [Not Recovered/Not Resolved]
